FAERS Safety Report 14495752 (Version 1)
Quarter: 2018Q1

REPORT INFORMATION
  Report Type: Spontaneous
  Country: US (occurrence: US)
  Receive Date: 20180206
  Receipt Date: 20180206
  Transmission Date: 20180509
  Serious: No
  Sender: FDA-Public Use
  Company Number: US-TEVA-2018-US-846996

PATIENT
  Sex: Male

DRUGS (1)
  1. ANTIBONT-A (BACITRACIN\NEOMYCIN\POLYMYXIN) [Suspect]
     Active Substance: BACITRACIN\NEOMYCIN\POLYMYXIN
     Indication: WOUND

REACTIONS (1)
  - Accidental exposure to product [Unknown]

NARRATIVE: CASE EVENT DATE: 20180111
